FAERS Safety Report 8240155-4 (Version None)
Quarter: 2012Q1

REPORT INFORMATION
  Report Type: 
  Country: None (occurrence: None)
  Receive Date: 20120328
  Receipt Date: 20110329
  Transmission Date: 20120608
  Serious: No
  Sender: FDA-Public Use
  Company Number: US-PFIZER INC-K201100384

PATIENT
  Age: 51 Year
  Sex: Male

DRUGS (8)
  1. CYMBALTA [Concomitant]
     Dosage: 90 MG, 1X/DAY
  2. FLECTOR [Suspect]
     Indication: INTERVERTEBRAL DISC DISORDER
     Dosage: 1 PATCH, Q 12 H
     Route: 061
     Dates: start: 20110101, end: 20110329
  3. LIPITOR [Concomitant]
     Dosage: UNK
  4. INDERAL [Concomitant]
     Indication: SWEAT GLAND DISORDER
     Dosage: UNK
  5. COZAAR [Concomitant]
     Dosage: 50 MG, UNK
  6. SKELAXIN [Suspect]
     Dosage: 800 MG, 3X/DAY PRN
     Route: 048
  7. TEGRETOL [Concomitant]
     Dosage: 400 MG, 2X/DAY
  8. SEROQUEL [Concomitant]
     Dosage: 400 MG, 1X/DAY

REACTIONS (7)
  - HOT FLUSH [None]
  - DRUG INEFFECTIVE [None]
  - BURNING SENSATION [None]
  - GAIT DISTURBANCE [None]
  - HYPERHIDROSIS [None]
  - ERYTHEMA [None]
  - EAR DISCOMFORT [None]
